FAERS Safety Report 7716015-1 (Version None)
Quarter: 2011Q3

REPORT INFORMATION
  Report Type: 
  Country: None (occurrence: None)
  Receive Date: 20110829
  Receipt Date: 20110819
  Transmission Date: 20111222
  Serious: Yes (Other)
  Sender: FDA-Public Use
  Company Number: DE-TEVA-297440GER

PATIENT
  Age: 23 Year
  Sex: Female
  Weight: 90 kg

DRUGS (2)
  1. CLINDAMYCIN [Suspect]
     Indication: FURUNCLE
     Dosage: 1200 MILLIGRAM;
     Route: 048
     Dates: start: 20101026, end: 20101027
  2. RIFAMPICIN [Suspect]
     Indication: FURUNCLE
     Route: 048
     Dates: start: 20101026, end: 20101027

REACTIONS (2)
  - AUTOIMMUNE THROMBOCYTOPENIA [None]
  - PURPURA [None]
